FAERS Safety Report 16631725 (Version 6)
Quarter: 2019Q3

REPORT INFORMATION
  Report Type: Spontaneous
  Country: US (occurrence: US)
  Receive Date: 20190725
  Receipt Date: 20190919
  Transmission Date: 20191004
  Serious: Yes (Other)
  Sender: FDA-Public Use
  Company Number: US-PFIZER INC-2019317197

PATIENT
  Age: 57 Year
  Sex: Female

DRUGS (1)
  1. CHANTIX [Suspect]
     Active Substance: VARENICLINE TARTRATE
     Indication: SMOKING CESSATION THERAPY
     Dosage: UNK, 1X/DAY
     Route: 048

REACTIONS (9)
  - Anxiety [Unknown]
  - Muscular weakness [Unknown]
  - Confusional state [Unknown]
  - Weight fluctuation [Unknown]
  - Hypothyroidism [Unknown]
  - Malaise [Unknown]
  - Arthritis [Unknown]
  - Infection [Unknown]
  - Major depression [Unknown]
